FAERS Safety Report 22649316 (Version 1)
Quarter: 2023Q2

REPORT INFORMATION
  Report Type: Spontaneous
  Country: US (occurrence: None)
  Receive Date: 20230626
  Receipt Date: 20230626
  Transmission Date: 20230722
  Serious: Yes (Hospitalization)
  Sender: FDA-Public Use
  Company Number: None

PATIENT
  Sex: Female

DRUGS (1)
  1. OPSUMIT [Suspect]
     Active Substance: MACITENTAN
     Indication: Pulmonary arterial hypertension
     Dosage: 10MG DAILY PO
     Route: 048
     Dates: start: 201904

REACTIONS (4)
  - Oedema peripheral [None]
  - Diarrhoea [None]
  - Pain in jaw [None]
  - Polycythaemia vera [None]

NARRATIVE: CASE EVENT DATE: 20230620
